FAERS Safety Report 5632820-X (Version None)
Quarter: 2008Q1

REPORT INFORMATION
  Report Type: 
  Country: None (occurrence: None)
  Receive Date: 20080221
  Receipt Date: 20071019
  Transmission Date: 20080703
  Serious: No
  Sender: FDA-Public Use
  Company Number: A0689596A

PATIENT
  Age: 74 Year
  Sex: Male

DRUGS (1)
  1. ALKERAN [Suspect]
     Indication: MULTIPLE MYELOMA
     Route: 065

REACTIONS (6)
  - ADVERSE DRUG REACTION [None]
  - DEHYDRATION [None]
  - DIZZINESS [None]
  - DRUG INEFFECTIVE [None]
  - VERTIGO [None]
  - VOMITING [None]
